FAERS Safety Report 13694049 (Version 1)
Quarter: 2017Q2

REPORT INFORMATION
  Report Type: Report from Study
  Country: IT (occurrence: IT)
  Receive Date: 20170627
  Receipt Date: 20170627
  Transmission Date: 20170830
  Serious: Yes (Other)
  Sender: FDA-Public Use
  Company Number: IT-MYLANLABS-2017M1037271

PATIENT

DRUGS (2)
  1. KETOROLAC [Suspect]
     Active Substance: KETOROLAC\KETOROLAC TROMETHAMINE
     Indication: BACK PAIN
     Route: 030
  2. BETAMETHASONE. [Interacting]
     Active Substance: BETAMETHASONE
     Indication: BACK PAIN
     Route: 030

REACTIONS (6)
  - Erosive duodenitis [Recovering/Resolving]
  - Incorrect drug administration duration [Recovering/Resolving]
  - Gastritis erosive [Recovering/Resolving]
  - Off label use [Recovering/Resolving]
  - Abdominal pain [Recovering/Resolving]
  - Drug interaction [Recovering/Resolving]
